FAERS Safety Report 14680203 (Version 1)
Quarter: 2018Q1

REPORT INFORMATION
  Report Type: Spontaneous
  Country: BR (occurrence: BR)
  Receive Date: 20180326
  Receipt Date: 20180326
  Transmission Date: 20180509
  Serious: Yes (Death, Hospitalization)
  Sender: FDA-Public Use
  Company Number: BR-BAYER-2018-051408

PATIENT
  Age: 60 Year
  Sex: Male

DRUGS (1)
  1. NEXAVAR [Suspect]
     Active Substance: SORAFENIB
     Dosage: 400 MG OR 600 MG DAILY
     Route: 048

REACTIONS (8)
  - Skin fissures [None]
  - Skin wound [None]
  - Death [Fatal]
  - Anaemia [None]
  - Pruritus [None]
  - Peripheral swelling [None]
  - Asthenia [None]
  - Gastric haemorrhage [None]

NARRATIVE: CASE EVENT DATE: 201711
